FAERS Safety Report 5718618-2 (Version None)
Quarter: 2008Q2

REPORT INFORMATION
  Report Type: 
  Country: None (occurrence: None)
  Receive Date: 20080425
  Receipt Date: 20080415
  Transmission Date: 20081010
  Serious: Yes (Other)
  Sender: FDA-Public Use
  Company Number: US-PFIZER INC-2008018581

PATIENT
  Sex: Female
  Weight: 63.636 kg

DRUGS (3)
  1. CELEBREX [Suspect]
     Indication: RADICULITIS
     Route: 048
     Dates: start: 20040101, end: 20060901
  2. LYRICA [Suspect]
     Indication: FIBROMYALGIA
     Route: 048
  3. OXYCONTIN [Concomitant]
     Route: 048

REACTIONS (7)
  - ANAEMIA [None]
  - BILE DUCT OBSTRUCTION [None]
  - EYE SWELLING [None]
  - GASTRIC DISORDER [None]
  - INSOMNIA [None]
  - LARGE INTESTINAL HAEMORRHAGE [None]
  - SWELLING FACE [None]
